FAERS Safety Report 8524096-0 (Version None)
Quarter: 2012Q3

REPORT INFORMATION
  Report Type: 
  Country: None (occurrence: None)
  Receive Date: 20120720
  Receipt Date: 20120712
  Transmission Date: 20120928
  Serious: Yes (Hospitalization)
  Sender: FDA-Public Use
  Company Number: JP-JNJFOC-20120612744

PATIENT
  Sex: Female
  Weight: 50 kg

DRUGS (10)
  1. WARFARIN SODIUM [Concomitant]
     Dates: start: 20110101, end: 20120614
  2. XARELTO [Suspect]
     Indication: THROMBOSIS PROPHYLAXIS
     Route: 048
     Dates: start: 20120616, end: 20120621
  3. TALION [Concomitant]
     Indication: ASTHMA
     Route: 048
     Dates: start: 20110827
  4. SPIRONOLACTONE [Concomitant]
     Indication: HYPERTENSION
     Route: 048
     Dates: start: 20091029
  5. OMEPRAZOLE [Concomitant]
     Indication: GASTROOESOPHAGEAL REFLUX DISEASE
     Route: 048
     Dates: start: 20110506
  6. MECOBALAMIN [Concomitant]
     Indication: NEURALGIA
     Route: 048
     Dates: start: 20120207
  7. DIOVAN HCT [Concomitant]
     Indication: HYPERTENSION
     Route: 048
     Dates: start: 20110922
  8. CONIEL [Concomitant]
     Indication: PRINZMETAL ANGINA
     Route: 048
     Dates: start: 20061124
  9. ZOLPIDEM [Concomitant]
     Route: 048
     Dates: start: 20100421
  10. TULOBUTEROL [Concomitant]
     Indication: ASTHMA
     Route: 062
     Dates: start: 20100421

REACTIONS (1)
  - CEREBRAL ARTERY EMBOLISM [None]
